FAERS Safety Report 14703623 (Version 5)
Quarter: 2022Q1

REPORT INFORMATION
  Report Type: Spontaneous
  Country: US (occurrence: None)
  Receive Date: 20180402
  Receipt Date: 20220323
  Transmission Date: 20220423
  Serious: Yes (Hospitalization, Other)
  Sender: FDA-Public Use
  Company Number: 2018SE38960

PATIENT
  Age: 57 Year
  Sex: Male
  Weight: 88.9 kg

DRUGS (69)
  1. NEXIUM [Suspect]
     Active Substance: ESOMEPRAZOLE MAGNESIUM
     Indication: Gastrointestinal disorder
     Route: 048
     Dates: start: 199501, end: 200512
  2. NEXIUM [Suspect]
     Active Substance: ESOMEPRAZOLE MAGNESIUM
     Indication: Gastrointestinal disorder
     Route: 048
  3. NEXIUM [Suspect]
     Active Substance: ESOMEPRAZOLE MAGNESIUM
     Indication: Gastrointestinal disorder
     Dosage: GENERIC
     Route: 048
  4. NEXIUM 24HR [Suspect]
     Active Substance: ESOMEPRAZOLE MAGNESIUM
     Indication: Gastrointestinal disorder
     Route: 048
     Dates: start: 199501, end: 200512
  5. NEXIUM 24HR [Suspect]
     Active Substance: ESOMEPRAZOLE MAGNESIUM
     Indication: Gastrointestinal disorder
     Route: 048
  6. PRILOSEC [Suspect]
     Active Substance: OMEPRAZOLE MAGNESIUM
     Indication: Gastrointestinal disorder
     Route: 048
     Dates: start: 19950101, end: 20051231
  7. PRILOSEC [Suspect]
     Active Substance: OMEPRAZOLE MAGNESIUM
     Indication: Gastrooesophageal reflux disease
     Route: 048
     Dates: start: 19950101, end: 20051231
  8. PRILOSEC [Suspect]
     Active Substance: OMEPRAZOLE MAGNESIUM
     Indication: Gastrointestinal disorder
     Route: 048
  9. PRILOSEC [Suspect]
     Active Substance: OMEPRAZOLE MAGNESIUM
     Indication: Gastrooesophageal reflux disease
     Route: 048
  10. PRILOSEC [Suspect]
     Active Substance: OMEPRAZOLE MAGNESIUM
     Indication: Gastrointestinal disorder
     Dosage: GENERIC
     Route: 065
  11. PRILOSEC [Suspect]
     Active Substance: OMEPRAZOLE MAGNESIUM
     Indication: Gastrooesophageal reflux disease
     Dosage: GENERIC
     Route: 065
  12. PRILOSEC [Suspect]
     Active Substance: OMEPRAZOLE MAGNESIUM
     Indication: Gastrointestinal disorder
     Dosage: 15MG PM
     Route: 048
     Dates: start: 19950101, end: 20051231
  13. PRILOSEC [Suspect]
     Active Substance: OMEPRAZOLE MAGNESIUM
     Indication: Gastrooesophageal reflux disease
     Dosage: 15MG PM
     Route: 048
     Dates: start: 19950101, end: 20051231
  14. PRILOSEC [Suspect]
     Active Substance: OMEPRAZOLE MAGNESIUM
     Indication: Gastrointestinal disorder
     Dosage: GENERIC
     Route: 065
     Dates: start: 20160909
  15. PRILOSEC [Suspect]
     Active Substance: OMEPRAZOLE MAGNESIUM
     Indication: Gastrooesophageal reflux disease
     Dosage: GENERIC
     Route: 065
     Dates: start: 20160909
  16. PRILOSEC [Suspect]
     Active Substance: OMEPRAZOLE MAGNESIUM
     Indication: Gastrointestinal disorder
     Dosage: GENERIC
     Route: 065
     Dates: start: 20160404
  17. PRILOSEC [Suspect]
     Active Substance: OMEPRAZOLE MAGNESIUM
     Indication: Gastrooesophageal reflux disease
     Dosage: GENERIC
     Route: 065
     Dates: start: 20160404
  18. PRILOSEC [Suspect]
     Active Substance: OMEPRAZOLE MAGNESIUM
     Indication: Gastrointestinal disorder
     Route: 048
     Dates: start: 20160909
  19. PRILOSEC [Suspect]
     Active Substance: OMEPRAZOLE MAGNESIUM
     Indication: Gastrooesophageal reflux disease
     Route: 048
     Dates: start: 20160909
  20. PRILOSEC OTC [Suspect]
     Active Substance: OMEPRAZOLE MAGNESIUM
     Indication: Gastrointestinal disorder
     Route: 048
     Dates: start: 199501, end: 200512
  21. PRILOSEC OTC [Suspect]
     Active Substance: OMEPRAZOLE MAGNESIUM
     Indication: Gastrointestinal disorder
     Route: 048
  22. DEXILANT [Suspect]
     Active Substance: DEXLANSOPRAZOLE
     Indication: Gastrointestinal disorder
     Route: 065
     Dates: start: 199501, end: 200512
  23. PREVACID [Suspect]
     Active Substance: LANSOPRAZOLE
     Indication: Gastrointestinal disorder
     Route: 065
     Dates: start: 199501, end: 200512
  24. PREVACID [Suspect]
     Active Substance: LANSOPRAZOLE
     Indication: Gastrooesophageal reflux disease
     Route: 065
     Dates: start: 199501, end: 200512
  25. PREVACID [Suspect]
     Active Substance: LANSOPRAZOLE
     Indication: Gastrointestinal disorder
     Route: 065
  26. PREVACID [Suspect]
     Active Substance: LANSOPRAZOLE
     Indication: Gastrooesophageal reflux disease
     Route: 065
  27. PREVACID [Suspect]
     Active Substance: LANSOPRAZOLE
     Indication: Gastrointestinal disorder
     Dosage: GENERIC
     Route: 065
  28. PREVACID [Suspect]
     Active Substance: LANSOPRAZOLE
     Indication: Gastrooesophageal reflux disease
     Dosage: GENERIC
     Route: 065
  29. PREVACID [Suspect]
     Active Substance: LANSOPRAZOLE
     Indication: Gastrointestinal disorder
     Dosage: 35 MG PM
     Route: 065
     Dates: start: 1995, end: 2005
  30. PREVACID [Suspect]
     Active Substance: LANSOPRAZOLE
     Indication: Gastrooesophageal reflux disease
     Dosage: 35 MG PM
     Route: 065
     Dates: start: 1995, end: 2005
  31. PREVACID [Suspect]
     Active Substance: LANSOPRAZOLE
     Indication: Gastrointestinal disorder
     Dosage: GENERIC
     Route: 065
     Dates: start: 20110603
  32. PREVACID [Suspect]
     Active Substance: LANSOPRAZOLE
     Indication: Gastrooesophageal reflux disease
     Dosage: GENERIC
     Route: 065
     Dates: start: 20110603
  33. PREVACID 24 HR [Suspect]
     Active Substance: LANSOPRAZOLE
     Indication: Gastrointestinal disorder
     Route: 065
     Dates: start: 199501, end: 200512
  34. PREVACID 24 HR [Suspect]
     Active Substance: LANSOPRAZOLE
     Indication: Gastrointestinal disorder
     Route: 065
  35. PROTONIX [Suspect]
     Active Substance: PANTOPRAZOLE SODIUM
     Indication: Gastrointestinal disorder
     Route: 065
     Dates: start: 199501, end: 200512
  36. PROTONIX [Suspect]
     Active Substance: PANTOPRAZOLE SODIUM
     Indication: Gastrointestinal disorder
     Route: 065
     Dates: start: 20160622
  37. PROTONIX [Suspect]
     Active Substance: PANTOPRAZOLE SODIUM
     Indication: Gastrointestinal disorder
     Route: 065
     Dates: start: 20171004
  38. ACIPHEX [Suspect]
     Active Substance: RABEPRAZOLE SODIUM
     Indication: Gastrointestinal disorder
     Route: 065
     Dates: start: 199501, end: 200512
  39. ZEGERID [Suspect]
     Active Substance: OMEPRAZOLE\SODIUM BICARBONATE
     Indication: Gastrointestinal disorder
     Route: 065
     Dates: start: 199501, end: 200512
  40. INSULIN NOS [Concomitant]
     Active Substance: INSULIN NOS
     Indication: Diabetes mellitus
  41. MELOXICAM [Concomitant]
     Active Substance: MELOXICAM
     Indication: Arthritis
  42. PIROXICAM [Concomitant]
     Active Substance: PIROXICAM
     Indication: Arthritis
  43. TRAMADOL [Concomitant]
     Active Substance: TRAMADOL
     Indication: Pain
  44. AMOXICILLIN [Concomitant]
     Active Substance: AMOXICILLIN
  45. ENALAPRIL [Concomitant]
     Active Substance: ENALAPRIL
  46. LISINOPRIL [Concomitant]
     Active Substance: LISINOPRIL
     Indication: Hypertension
  47. FUROSEMIDE [Concomitant]
     Active Substance: FUROSEMIDE
  48. SPIRONOLACTONE [Concomitant]
     Active Substance: SPIRONOLACTONE
  49. HYDRALAZINE [Concomitant]
     Active Substance: HYDRALAZINE HYDROCHLORIDE
  50. TUMS [Concomitant]
     Active Substance: CALCIUM CARBONATE
  51. PRAMIPEXOLE [Concomitant]
     Active Substance: PRAMIPEXOLE
     Indication: Restless legs syndrome
     Dates: start: 1995
  52. PERCOCET [Concomitant]
     Active Substance: ACETAMINOPHEN\OXYCODONE HYDROCHLORIDE
  53. ULORIC [Concomitant]
     Active Substance: FEBUXOSTAT
  54. TEMAZEPAM [Concomitant]
     Active Substance: TEMAZEPAM
  55. ALBUTEROL [Concomitant]
     Active Substance: ALBUTEROL
  56. CYTOMEL [Concomitant]
     Active Substance: LIOTHYRONINE SODIUM
  57. MIRAPEX [Concomitant]
     Active Substance: PRAMIPEXOLE DIHYDROCHLORIDE
  58. GABAPENTIN [Concomitant]
     Active Substance: GABAPENTIN
  59. COREG [Concomitant]
     Active Substance: CARVEDILOL
  60. SYNTHROID [Concomitant]
     Active Substance: LEVOTHYROXINE SODIUM
  61. ZOSYN [Concomitant]
     Active Substance: PIPERACILLIN SODIUM\TAZOBACTAM SODIUM
  62. ZOFRAN [Concomitant]
     Active Substance: ONDANSETRON HYDROCHLORIDE
  63. NORCO [Concomitant]
     Active Substance: ACETAMINOPHEN\HYDROCODONE BITARTRATE
  64. NOVOLOG [Concomitant]
     Active Substance: INSULIN ASPART
  65. CARAFATE [Concomitant]
     Active Substance: SUCRALFATE
  66. LONITEN [Concomitant]
     Active Substance: MINOXIDIL
  67. METOLAZONE [Concomitant]
     Active Substance: METOLAZONE
     Dates: start: 20141009
  68. LACTULOSE [Concomitant]
     Active Substance: LACTULOSE
     Dates: start: 20160404
  69. POLYETHYLENE GLYCOL [Concomitant]
     Active Substance: POLYETHYLENE GLYCOL
     Dates: start: 20160407

REACTIONS (7)
  - Acute kidney injury [Not Recovered/Not Resolved]
  - Chronic kidney disease [Not Recovered/Not Resolved]
  - End stage renal disease [Unknown]
  - Hyperparathyroidism secondary [Unknown]
  - Nephrogenic anaemia [Unknown]
  - Renal failure [Unknown]
  - Renal injury [Unknown]

NARRATIVE: CASE EVENT DATE: 20050101
